FAERS Safety Report 12431087 (Version 2)
Quarter: 2016Q2

REPORT INFORMATION
  Report Type: Spontaneous
  Country: JP (occurrence: JP)
  Receive Date: 20160603
  Receipt Date: 20160629
  Transmission Date: 20160815
  Serious: Yes (Other)
  Sender: FDA-Public Use
  Company Number: JP-ROCHE-1768381

PATIENT
  Age: 19 Year
  Sex: Male
  Weight: 36 kg

DRUGS (6)
  1. ALEVIATIN [Suspect]
     Active Substance: PHENYTOIN SODIUM
     Indication: PRODUCT USED FOR UNKNOWN INDICATION
     Route: 065
     Dates: end: 20160308
  2. ALEVIATIN [Suspect]
     Active Substance: PHENYTOIN SODIUM
     Indication: EPILEPSY
     Route: 048
     Dates: start: 20160308, end: 201603
  3. OLOPATADINE HYDROCHLORIDE. [Concomitant]
     Active Substance: OLOPATADINE HYDROCHLORIDE
     Indication: DERMATITIS ATOPIC
     Route: 048
  4. ALEVIATIN [Suspect]
     Active Substance: PHENYTOIN SODIUM
     Indication: EPILEPSY
     Route: 048
     Dates: start: 20160331
  5. TAMIFLU [Suspect]
     Active Substance: OSELTAMIVIR PHOSPHATE
     Indication: ANTIVIRAL PROPHYLAXIS
     Dosage: MOST RECENT DOSE ON 19/FEB/2016.
     Route: 048
     Dates: start: 20160210, end: 20160219
  6. CERCINE [Concomitant]
     Active Substance: DIAZEPAM
     Indication: AGITATION
     Route: 048

REACTIONS (6)
  - Somnolence [Unknown]
  - Face oedema [Recovered/Resolved]
  - Drug level increased [Unknown]
  - Hepatic function abnormal [Recovered/Resolved]
  - Somnolence [Recovered/Resolved]
  - Intentional self-injury [Unknown]

NARRATIVE: CASE EVENT DATE: 20160223
